FAERS Safety Report 8939907 (Version 1)
Quarter: 2012Q4

REPORT INFORMATION
  Report Type: 
  Country: BR (occurrence: BR)
  Receive Date: 20121203
  Receipt Date: 20121203
  Transmission Date: 20130627
  Serious: Yes (Hospitalization)
  Sender: FDA-Public Use
  Company Number: BR-ASTRAZENECA-2012SE89437

PATIENT
  Age: 60 Year
  Sex: Male
  Weight: 80 kg

DRUGS (4)
  1. ATACAND [Suspect]
     Indication: HYPERTENSION
     Route: 048
     Dates: start: 2009
  2. CRESTOR [Suspect]
     Indication: LIPIDS ABNORMAL
     Route: 048
     Dates: start: 2009
  3. ASPIRIN [Concomitant]
     Route: 048
     Dates: start: 2009
  4. CLOPIDOGREL [Concomitant]
     Route: 048
     Dates: start: 2009, end: 20121123

REACTIONS (1)
  - Venous occlusion [Recovered/Resolved]
